APPROVED DRUG PRODUCT: DICLOXACILLIN SODIUM
Active Ingredient: DICLOXACILLIN SODIUM
Strength: EQ 125MG BASE
Dosage Form/Route: CAPSULE;ORAL
Application: A061454 | Product #002
Applicant: CHARTWELL RX SCIENCES LLC
Approved: Approved Prior to Jan 1, 1982 | RLD: No | RS: No | Type: DISCN